FAERS Safety Report 15530446 (Version 1)
Quarter: 2018Q4

REPORT INFORMATION
  Report Type: Spontaneous
  Country: US (occurrence: US)
  Receive Date: 20181018
  Receipt Date: 20181018
  Transmission Date: 20190205
  Serious: Yes (Other)
  Sender: FDA-Public Use
  Company Number: US-009507513-1810USA007224

PATIENT
  Age: 59 Year
  Sex: Female
  Weight: 51.7 kg

DRUGS (13)
  1. LYRICA [Suspect]
     Active Substance: PREGABALIN
     Dosage: 300 MG, QD
  2. PRAVASTATIN. [Suspect]
     Active Substance: PRAVASTATIN
     Route: 065
  3. ZOCOR [Suspect]
     Active Substance: SIMVASTATIN
     Route: 065
  4. LYRICA [Suspect]
     Active Substance: PREGABALIN
     Dosage: 200 MG, QD
  5. LIPITOR [Suspect]
     Active Substance: ATORVASTATIN CALCIUM
     Route: 065
  6. TRAVATAN Z [Suspect]
     Active Substance: TRAVOPROST
     Indication: GLAUCOMA
     Dosage: 0.04 %, QD.
     Route: 047
     Dates: start: 2007
  7. LYRICA [Suspect]
     Active Substance: PREGABALIN
     Dosage: 200 MG, QD
  8. TRUSOPT [Suspect]
     Active Substance: DORZOLAMIDE HYDROCHLORIDE
     Dosage: 4 %, QD
     Route: 047
     Dates: start: 2007
  9. ZETIA [Suspect]
     Active Substance: EZETIMIBE
     Indication: BLOOD CHOLESTEROL INCREASED
     Dosage: 1 DF, QD
     Route: 048
  10. CRESTOR [Suspect]
     Active Substance: ROSUVASTATIN CALCIUM
     Route: 048
  11. LYRICA [Suspect]
     Active Substance: PREGABALIN
     Dosage: 50 MG, UNK
     Route: 048
     Dates: start: 20150716
  12. LYRICA [Suspect]
     Active Substance: PREGABALIN
     Dosage: 300 MG, QD
  13. LYRICA [Suspect]
     Active Substance: PREGABALIN
     Dosage: 50 MG TWICE PER DAY AND GRADUALLY INCREASE TO THREE-FOUR TIMES PER DAY

REACTIONS (10)
  - Vision blurred [Not Recovered/Not Resolved]
  - Glaucoma [Not Recovered/Not Resolved]
  - Product quality issue [Unknown]
  - Neuropathy peripheral [Not Recovered/Not Resolved]
  - Foot deformity [Not Recovered/Not Resolved]
  - Off label use [Unknown]
  - Feeling abnormal [Unknown]
  - Loss of personal independence in daily activities [Unknown]
  - Pain in extremity [Not Recovered/Not Resolved]
  - Asthenia [Unknown]

NARRATIVE: CASE EVENT DATE: 2006
